FAERS Safety Report 7361717-2 (Version None)
Quarter: 2011Q1

REPORT INFORMATION
  Report Type: 
  Country: None (occurrence: None)
  Receive Date: 20110318
  Receipt Date: 20110314
  Transmission Date: 20110831
  Serious: Yes (Death, Hospitalization, Other)
  Sender: FDA-Public Use
  Company Number: US-PFIZER INC-2010072305

PATIENT
  Sex: Female

DRUGS (18)
  1. PAROXETINE [Concomitant]
     Indication: ANXIETY
     Dosage: UNK
     Dates: start: 20080605, end: 20080601
  2. NASONEX [Concomitant]
     Indication: MULTIPLE ALLERGIES
     Dosage: UNK
     Dates: start: 20080319, end: 20080601
  3. CHANTIX [Suspect]
     Indication: SMOKING CESSATION THERAPY
     Dosage: 1 MG, UNK
     Dates: start: 20080318, end: 20080502
  4. TEMAZEPAM [Concomitant]
     Indication: SLEEP DISORDER
     Dosage: UNK
     Dates: start: 20080115, end: 20080605
  5. AMLODIPINE BESILATE [Concomitant]
     Indication: CARDIAC DISORDER
     Dosage: UNK
     Dates: start: 20080307, end: 20080602
  6. PROMETHAZINE [Concomitant]
     Indication: NAUSEA
     Dosage: UNK
     Dates: start: 20080528, end: 20080601
  7. MONTELUKAST SODIUM [Concomitant]
     Indication: MULTIPLE ALLERGIES
     Dosage: UNK
     Dates: start: 20080319, end: 20080601
  8. MECLIZINE [Concomitant]
     Indication: NAUSEA
     Dosage: UNK
     Dates: start: 20080517, end: 20080601
  9. ABILIFY [Concomitant]
     Indication: MOOD SWINGS
     Dosage: UNK
     Dates: start: 20080219, end: 20080601
  10. ABILIFY [Concomitant]
     Indication: BIPOLAR DISORDER
  11. CLONIDINE [Concomitant]
     Indication: BLOOD PRESSURE
     Dosage: UNK
     Dates: start: 20080326, end: 20080601
  12. DIAZEPAM [Concomitant]
     Indication: ANXIETY
     Dosage: UNK
     Dates: start: 20080123, end: 20080605
  13. OXYCODONE [Concomitant]
     Indication: PAIN
     Dosage: UNK
     Dates: start: 20080228, end: 20080601
  14. MECLIZINE [Concomitant]
     Indication: DIZZINESS
  15. METHYLPREDNISOLONE [Concomitant]
     Indication: INFLAMMATION
     Dosage: UNK
     Dates: start: 20080517, end: 20080601
  16. ZYRTEC [Concomitant]
     Indication: MULTIPLE ALLERGIES
     Dosage: UNK
     Dates: start: 20080319, end: 20080601
  17. SKELAXIN [Concomitant]
     Indication: MUSCLE RELAXANT THERAPY
     Dosage: UNK
     Dates: start: 20080319, end: 20080601
  18. PAROXETINE [Concomitant]
     Indication: DEPRESSION

REACTIONS (8)
  - AGGRESSION [None]
  - CONFUSIONAL STATE [None]
  - BIPOLAR DISORDER [None]
  - LOSS OF CONSCIOUSNESS [None]
  - POST-TRAUMATIC STRESS DISORDER [None]
  - COMPLETED SUICIDE [None]
  - AMNESIA [None]
  - DELUSION [None]
